FAERS Safety Report 7075560-5 (Version None)
Quarter: 2010Q4

REPORT INFORMATION
  Report Type: 
  Country: None (occurrence: None)
  Receive Date: 20101030
  Receipt Date: 20100923
  Transmission Date: 20110411
  Serious: No
  Sender: FDA-Public Use
  Company Number: US-WYE-H17754110

PATIENT
  Sex: Female
  Weight: 56.3 kg

DRUGS (1)
  1. PRISTIQ [Suspect]
     Indication: DEPRESSION
     Dosage: ONE HALF OF A 50 MG TABLET ONCE DAILY
     Route: 048
     Dates: start: 20100713, end: 20100901

REACTIONS (4)
  - AGITATION [None]
  - DRUG INEFFECTIVE [None]
  - NONSPECIFIC REACTION [None]
  - WRONG TECHNIQUE IN DRUG USAGE PROCESS [None]
